FAERS Safety Report 22022962 (Version 1)
Quarter: 2023Q1

REPORT INFORMATION
  Report Type: Spontaneous
  Country: DE (occurrence: DE)
  Receive Date: 20230222
  Receipt Date: 20230222
  Transmission Date: 20230418
  Serious: Yes (Death, Other)
  Sender: FDA-Public Use
  Company Number: DE-SUN PHARMACEUTICAL INDUSTRIES LTD-2023R1-378495

PATIENT
  Age: 46 Year
  Sex: Female

DRUGS (1)
  1. AZACITIDINE [Suspect]
     Active Substance: AZACITIDINE
     Indication: Angioimmunoblastic T-cell lymphoma refractory
     Dosage: 7 CONSECUTIVE DAYS EVERY 28 DAYS
     Route: 058

REACTIONS (2)
  - Tumour lysis syndrome [Fatal]
  - Off label use [Unknown]
